FAERS Safety Report 10844770 (Version 1)
Quarter: 2015Q1

REPORT INFORMATION
  Report Type: Spontaneous
  Country: US (occurrence: US)
  Receive Date: 20150220
  Receipt Date: 20150220
  Transmission Date: 20150721
  Serious: No
  Sender: FDA-Public Use
  Company Number: US-BAYER-2015-025318

PATIENT
  Age: 32 Year
  Sex: Female

DRUGS (2)
  1. CLIMARA [Suspect]
     Active Substance: ESTRADIOL
     Indication: INFERTILITY
     Dosage: 1 DF, QOD
     Route: 062
  2. CLIMARA [Suspect]
     Active Substance: ESTRADIOL
     Indication: INFERTILITY
     Dosage: ONE PATCH EVERY OTHER DAY, LAST TWO BOXES
     Route: 062

REACTIONS (5)
  - Pruritus [Not Recovered/Not Resolved]
  - Inappropriate schedule of drug administration [None]
  - Pain [Not Recovered/Not Resolved]
  - Dermatitis contact [Not Recovered/Not Resolved]
  - Product use issue [None]
